FAERS Safety Report 23751803 (Version 1)
Quarter: 2024Q2

REPORT INFORMATION
  Report Type: Spontaneous
  Country: US (occurrence: US)
  Receive Date: 20240417
  Receipt Date: 20240417
  Transmission Date: 20240716
  Serious: No
  Sender: FDA-Public Use
  Company Number: US-B.Braun Medical Inc.-2155656

PATIENT
  Age: 28 Year
  Sex: Female

DRUGS (1)
  1. CEFOXITIN AND DEXTROSE [Suspect]
     Active Substance: CEFOXITIN SODIUM

REACTIONS (1)
  - Nausea [Unknown]
